FAERS Safety Report 6537053-0 (Version None)
Quarter: 2010Q1

REPORT INFORMATION
  Report Type: 
  Country: None (occurrence: None)
  Receive Date: 20100114
  Receipt Date: 20100105
  Transmission Date: 20100710
  Serious: Yes (Hospitalization)
  Sender: FDA-Public Use
  Company Number: US-BIOGENIDEC-2008BI022845

PATIENT
  Age: 58 Year
  Sex: Male
  Weight: 95 kg

DRUGS (4)
  1. TYSABRI [Suspect]
     Indication: MULTIPLE SCLEROSIS
     Route: 042
     Dates: start: 20070510
  2. ZANAFLEX [Concomitant]
  3. NABUMETONE [Concomitant]
  4. AMANTADINE HCL [Concomitant]

REACTIONS (7)
  - CELLULITIS [None]
  - DIARRHOEA [None]
  - EPIDIDYMITIS [None]
  - ESCHERICHIA URINARY TRACT INFECTION [None]
  - MENISCUS LESION [None]
  - RASH PRURITIC [None]
  - STAPHYLOCOCCAL INFECTION [None]
